FAERS Safety Report 16157081 (Version 1)
Quarter: 2019Q2

REPORT INFORMATION
  Report Type: Spontaneous
  Country: US (occurrence: US)
  Receive Date: 20190403
  Receipt Date: 20190403
  Transmission Date: 20190711
  Serious: No
  Sender: FDA-Public Use
  Company Number: None

PATIENT
  Age: 43 Year
  Sex: Female
  Weight: 76.5 kg

DRUGS (8)
  1. COLESTIPOL [Concomitant]
     Active Substance: COLESTIPOL
  2. QUINIDINE SULFATE 200MG [Suspect]
     Active Substance: QUINIDINE SULFATE
     Indication: MUSCLE SPASMS
     Dates: start: 20190222, end: 20190402
  3. ENTOCORT EC [Concomitant]
     Active Substance: BUDESONIDE
  4. TUMERIC [Concomitant]
     Active Substance: HERBALS\TURMERIC
  5. PROBIOTIC [Concomitant]
     Active Substance: PROBIOTICS NOS
  6. ENTYVIO [Concomitant]
     Active Substance: VEDOLIZUMAB
  7. SYMAX SR [Concomitant]
     Active Substance: HYOSCYAMINE SULFATE
  8. LEGAL LOQ THC CANNABIS [Concomitant]

REACTIONS (5)
  - Wrong product administered [None]
  - Product dispensing error [None]
  - Heart rate increased [None]
  - Insomnia [None]
  - Chest discomfort [None]

NARRATIVE: CASE EVENT DATE: 20190403
